FAERS Safety Report 26137919 (Version 2)
Quarter: 2025Q4

REPORT INFORMATION
  Report Type: Spontaneous
  Country: US (occurrence: US)
  Receive Date: 20251210
  Receipt Date: 20251210
  Transmission Date: 20260117
  Serious: Yes (Hospitalization)
  Sender: ROCHE
  Company Number: US-ROCHE-10000449473

PATIENT
  Sex: Female

DRUGS (1)
  1. OCREVUS [Suspect]
     Active Substance: OCRELIZUMAB
     Indication: Relapsing-remitting multiple sclerosis
     Dosage: ON 08-AUG-2025, SHE RECEIVED AN OCRELIZUMAB INFUSION WITHOUT IMMEDIATE ISSUE
     Route: 042

REACTIONS (4)
  - Asthenia [Unknown]
  - Rash [Unknown]
  - Urticaria [Unknown]
  - Fall [Unknown]

NARRATIVE: CASE EVENT DATE: 20251028
